FAERS Safety Report 16745906 (Version 1)
Quarter: 2019Q3

REPORT INFORMATION
  Report Type: Spontaneous
  Country: AU (occurrence: AU)
  Receive Date: 20190827
  Receipt Date: 20190827
  Transmission Date: 20191005
  Serious: Yes (Other)
  Sender: FDA-Public Use
  Company Number: PHHY2019AU197336

PATIENT
  Age: 69 Year
  Sex: Male

DRUGS (3)
  1. IMATINIB. [Suspect]
     Active Substance: IMATINIB MESYLATE
     Indication: CHRONIC MYELOID LEUKAEMIA
     Dosage: 600 MG, QD
     Route: 065
     Dates: start: 2003
  2. PEGINTRON [Suspect]
     Active Substance: PEGINTERFERON ALFA-2B
     Indication: CHRONIC MYELOID LEUKAEMIA
     Dosage: 90 UG, QW
     Route: 065
  3. IMATINIB. [Suspect]
     Active Substance: IMATINIB MESYLATE
     Dosage: 400 MG, QD
     Route: 065

REACTIONS (22)
  - Hepatotoxicity [Unknown]
  - Iron deficiency [Unknown]
  - Marrow hyperplasia [Unknown]
  - Erythropoiesis abnormal [Unknown]
  - Renal impairment [Unknown]
  - Poikilocytosis [Unknown]
  - Fatigue [Unknown]
  - Megakaryocytes increased [Unknown]
  - Depression [Unknown]
  - Thrombocytosis [Unknown]
  - Anxiety [Unknown]
  - 5q minus syndrome [Unknown]
  - Cytogenetic analysis abnormal [Unknown]
  - Trisomy 9 [Unknown]
  - Neutrophilia [Unknown]
  - Janus kinase 2 mutation [Unknown]
  - Anisocytosis [Unknown]
  - Gastrointestinal angiectasia [Unknown]
  - Hypertension [Unknown]
  - Polycythaemia vera [Unknown]
  - Bone marrow myelogram abnormal [Unknown]
  - Platelet morphology abnormal [Unknown]
